FAERS Safety Report 4802966-4 (Version None)
Quarter: 2005Q4

REPORT INFORMATION
  Report Type: 
  Country: None (occurrence: None)
  Receive Date: 20051013
  Receipt Date: 20050922
  Transmission Date: 20060501
  Serious: Yes (Hospitalization)
  Sender: FDA-Public Use
  Company Number: CA_050808656

PATIENT
  Age: 12 Year
  Sex: Female
  Weight: 68 kg

DRUGS (2)
  1. HUMATROPE [Suspect]
     Indication: TURNER'S SYNDROME
     Dosage: 0.05 MG/KG/DAY/6 WEEK
     Dates: start: 20000317, end: 20050303
  2. SYNTHROID [Concomitant]

REACTIONS (6)
  - CARDIAC VALVE REPLACEMENT COMPLICATION [None]
  - HEART VALVE CALCIFICATION [None]
  - MITRAL VALVE INCOMPETENCE [None]
  - PLEURAL EFFUSION [None]
  - PROCEDURAL HYPERTENSION [None]
  - TRICUSPID VALVE INCOMPETENCE [None]
